FAERS Safety Report 8877248 (Version 1)
Quarter: 2012Q4

REPORT INFORMATION
  Report Type: 
  Country: US (occurrence: US)
  Receive Date: 20121023
  Receipt Date: 20121023
  Transmission Date: 20130627
  Serious: No
  Sender: FDA-Public Use
  Company Number: US-AMGEN-USASP2012058706

PATIENT
  Sex: Female

DRUGS (1)
  1. ENBREL [Suspect]
     Indication: RHEUMATOID ARTHRITIS
     Dosage: UNK UNK, week
     Route: 058
     Dates: start: 20090615

REACTIONS (3)
  - Pain [Unknown]
  - Aphonia [Unknown]
  - Nasopharyngitis [Not Recovered/Not Resolved]
